FAERS Safety Report 7640630-7 (Version None)
Quarter: 2011Q3

REPORT INFORMATION
  Report Type: 
  Country: None (occurrence: None)
  Receive Date: 20110721
  Receipt Date: 20110712
  Transmission Date: 20111222
  Serious: Yes (Disabling)
  Sender: FDA-Public Use
  Company Number: 981539

PATIENT
  Age: 76 Year
  Sex: Male

DRUGS (3)
  1. (ANTIHYPERTENSIIVES) [Concomitant]
  2. (LIPID MODIFYING AGENTS) [Concomitant]
  3. PACLITAXEL [Suspect]
     Indication: METASTATIC MALIGNANT MELANOMA

REACTIONS (2)
  - RETINOPATHY [None]
  - VISUAL ACUITY REDUCED [None]
